FAERS Safety Report 24768336 (Version 3)
Quarter: 2025Q1

REPORT INFORMATION
  Report Type: Report from Study
  Country: US (occurrence: US)
  Receive Date: 20241223
  Receipt Date: 20250214
  Transmission Date: 20250409
  Serious: Yes (Hospitalization)
  Sender: ABBVIE
  Company Number: US-ABBVIE-6025932

PATIENT
  Age: 77 Year
  Sex: Female
  Weight: 71 kg

DRUGS (4)
  1. HUMIRA [Suspect]
     Active Substance: ADALIMUMAB
     Indication: Colitis ulcerative
     Dosage: FORM STRENGTH: 40 MILLIGRAM?LAST ADMIN DATE 2016
     Route: 058
     Dates: start: 20160726
  2. HUMIRA [Suspect]
     Active Substance: ADALIMUMAB
     Dosage: FORM STRENGTH: 40 MILLIGRAM
     Route: 058
     Dates: start: 20160805
  3. AMBIEN [Suspect]
     Active Substance: ZOLPIDEM TARTRATE
     Indication: Product used for unknown indication
     Route: 065
  4. WARFARIN [Concomitant]
     Active Substance: WARFARIN
     Indication: Anticoagulant therapy

REACTIONS (7)
  - Fall [Recovering/Resolving]
  - Rib fracture [Recovered/Resolved]
  - Concussion [Recovering/Resolving]
  - Hiatus hernia [Recovered/Resolved]
  - Haematemesis [Recovered/Resolved]
  - Headache [Recovering/Resolving]
  - Faeces discoloured [Recovered/Resolved]

NARRATIVE: CASE EVENT DATE: 20240712
